FAERS Safety Report 5967955-5 (Version None)
Quarter: 2008Q4

REPORT INFORMATION
  Report Type: 
  Country: None (occurrence: None)
  Receive Date: 20081121
  Receipt Date: 20081121
  Transmission Date: 20090506
  Serious: Yes (Hospitalization)
  Sender: FDA-Public Use
  Company Number: None

PATIENT
  Age: 47 Year
  Sex: Female
  Weight: 48.671 kg

DRUGS (13)
  1. BEVACIZUMAB [Suspect]
     Indication: METASTATIC GASTRIC CANCER
     Dosage: 7.5 MG/KG D1/22DAYCYCLE
     Dates: start: 20080905, end: 20081107
  2. OXALIPLATIN [Suspect]
     Indication: METASTATIC GASTRIC CANCER
     Dosage: 60MG/M2
  3. DOCETAXEL [Suspect]
     Dosage: 55MG/M2 D1
  4. COLACE [Concomitant]
  5. LUNESTA [Concomitant]
  6. OMEPRAZOLE [Concomitant]
  7. TRAMADOL HCL [Concomitant]
  8. VITAMIN B-12 [Concomitant]
  9. COMPAZINE [Concomitant]
  10. EMLA [Concomitant]
  11. DULCOLAX [Concomitant]
  12. DURAGESIC-100 [Concomitant]
  13. MIRALAX [Concomitant]

REACTIONS (7)
  - ABDOMINAL PAIN [None]
  - CATHETER SITE RELATED REACTION [None]
  - CELLULITIS [None]
  - GASTROINTESTINAL STOMA COMPLICATION [None]
  - NAUSEA [None]
  - NEUTROPENIA [None]
  - SECRETION DISCHARGE [None]
